FAERS Safety Report 5328395-5 (Version None)
Quarter: 2007Q2

REPORT INFORMATION
  Report Type: 
  Country: None (occurrence: None)
  Receive Date: 20070514
  Receipt Date: 20070427
  Transmission Date: 20071010
  Serious: Yes (Life-Threatening)
  Sender: FDA-Public Use
  Company Number: 2007RR-07266

PATIENT
  Age: 85 Year
  Sex: Female

DRUGS (2)
  1. ACETAMINOPHEN [Suspect]
     Dosage: 1 G, 1 DAYS
  2. ARICEPT [Suspect]
     Indication: DEMENTIA ALZHEIMER'S TYPE
     Dosage: 10 MG, QD, ORAL
     Route: 048
     Dates: start: 20070118

REACTIONS (1)
  - ATRIOVENTRICULAR BLOCK FIRST DEGREE [None]
